FAERS Safety Report 13050570 (Version 1)
Quarter: 2016Q4

REPORT INFORMATION
  Report Type: Spontaneous
  Country: US (occurrence: US)
  Receive Date: 20161221
  Receipt Date: 20161221
  Transmission Date: 20170207
  Serious: No
  Sender: FDA-Public Use
  Company Number: US-NOVOPROD-502470

PATIENT
  Age: 72 Year
  Sex: Female

DRUGS (1)
  1. LEVEMIR [Suspect]
     Active Substance: INSULIN DETEMIR
     Indication: PRODUCT USED FOR UNKNOWN INDICATION
     Dosage: 30 U, QD
     Route: 058

REACTIONS (8)
  - Reaction to preservatives [Unknown]
  - Temperature intolerance [Unknown]
  - Injection site pain [Recovered/Resolved]
  - Blood glucose increased [Not Recovered/Not Resolved]
  - Dizziness [Unknown]
  - Product quality issue [Unknown]
  - Fatigue [Unknown]
  - Neuropathy peripheral [Unknown]
